FAERS Safety Report 18309688 (Version 32)
Quarter: 2022Q4

REPORT INFORMATION
  Report Type: Spontaneous
  Country: CA (occurrence: CA)
  Receive Date: 20200925
  Receipt Date: 20221202
  Transmission Date: 20230113
  Serious: Yes (Hospitalization, Other)
  Sender: FDA-Public Use
  Company Number: CA-CELLTRION INC.-2019CA026518

PATIENT

DRUGS (47)
  1. INFLECTRA [Suspect]
     Active Substance: INFLIXIMAB-DYYB
     Indication: Crohn^s disease
     Dosage: 5 MG/KG OR 295 MG AT WEEK 0, 2, 6 THEN EVERY 8 WEEKS
     Route: 042
     Dates: start: 20191017
  2. INFLECTRA [Suspect]
     Active Substance: INFLIXIMAB-DYYB
     Dosage: 5 MG/KG AT WEEK 0, 2, 6 THEN EVERY 8 WEEKS
     Route: 042
     Dates: start: 20191017, end: 20200730
  3. INFLECTRA [Suspect]
     Active Substance: INFLIXIMAB-DYYB
     Dosage: 5 MG/KG OR 295 MG AT WEEK 0, 2, 6 THEN EVERY 8 WEEKS
     Route: 042
     Dates: start: 20191127
  4. INFLECTRA [Suspect]
     Active Substance: INFLIXIMAB-DYYB
     Dosage: 5 MG/KG OR 295 MG AT WEEK 0, 2, 6 THEN EVERY 8 WEEKS
     Route: 042
     Dates: start: 20191219
  5. INFLECTRA [Suspect]
     Active Substance: INFLIXIMAB-DYYB
     Dosage: 5 MG/KG OR 295 MG AT WEEK 0, 2, 6 THEN EVERY 8 WEEKS
     Route: 042
     Dates: start: 20200212
  6. INFLECTRA [Suspect]
     Active Substance: INFLIXIMAB-DYYB
     Dosage: 5 MG/KG OR 295 MG AT WEEK 0, 2, 6 THEN EVERY 8 WEEKS
     Route: 042
     Dates: start: 20200409
  7. INFLECTRA [Suspect]
     Active Substance: INFLIXIMAB-DYYB
     Dosage: 5 MG/KG OR 300 MG AT WEEK 0, 2, 6 THEN EVERY 8 WEEKS
     Route: 042
     Dates: start: 20200604
  8. INFLECTRA [Suspect]
     Active Substance: INFLIXIMAB-DYYB
     Dosage: 5 MG/KG OR 300 MG AT WEEK 0, 2, 6 THEN EVERY 8 WEEKS
     Route: 042
     Dates: start: 20200730
  9. INFLECTRA [Suspect]
     Active Substance: INFLIXIMAB-DYYB
     Dosage: 5 MG/KG ROUND UP TO THE SUPERIOR VIAL EVERY 8 WEEKS
     Route: 042
     Dates: start: 20201001, end: 20201001
  10. INFLECTRA [Suspect]
     Active Substance: INFLIXIMAB-DYYB
     Dosage: 10 MG/KG ROUND UP TO THE NEAREST HUNDRED EVERY 4 WEEKS
     Route: 042
     Dates: start: 20201104
  11. INFLECTRA [Suspect]
     Active Substance: INFLIXIMAB-DYYB
     Dosage: 10 MG/KG, ROUND UP TO THE NEAREST HUNDRED EVERY 4 WEEKS
     Route: 042
     Dates: start: 20201104, end: 20210128
  12. INFLECTRA [Suspect]
     Active Substance: INFLIXIMAB-DYYB
     Dosage: 10 MG/KG ROUND UP TO THE NEAREST HUNDRED EVERY 4 WEEKS
     Route: 042
     Dates: start: 20201202
  13. INFLECTRA [Suspect]
     Active Substance: INFLIXIMAB-DYYB
     Dosage: 10 MG/KG ROUND UP TO THE NEAREST HUNDRED EVERY 4 WEEKS
     Route: 042
     Dates: start: 20201230
  14. INFLECTRA [Suspect]
     Active Substance: INFLIXIMAB-DYYB
     Dosage: 400 MG, 5 MG/KG EVERY 4 WEEKS, ROUND DOSE UP TO FULL VIAL
     Route: 042
     Dates: start: 20210225
  15. INFLECTRA [Suspect]
     Active Substance: INFLIXIMAB-DYYB
     Dosage: 10 MG/KG ROUND UP TO THE NEAREST HUNDRED EVERY 4 WEEKS
     Route: 042
     Dates: start: 20210324
  16. INFLECTRA [Suspect]
     Active Substance: INFLIXIMAB-DYYB
     Dosage: 10 MG/KG ROUND UP TO THE NEAREST HUNDRED EVERY 4 WEEKS
     Route: 042
     Dates: start: 20210421
  17. INFLECTRA [Suspect]
     Active Substance: INFLIXIMAB-DYYB
     Dosage: 10 MG/KG ROUND UP TO THE NEAREST HUNDRED EVERY 4 WEEKS
     Route: 042
     Dates: start: 20210519
  18. INFLECTRA [Suspect]
     Active Substance: INFLIXIMAB-DYYB
     Dosage: 10 MG/KG ROUND UP TO THE NEAREST HUNDRED EVERY 4 WEEKS
     Route: 042
     Dates: start: 20210616
  19. INFLECTRA [Suspect]
     Active Substance: INFLIXIMAB-DYYB
     Dosage: 10 MG/KG ROUND UP TO THE NEAREST HUNDRED EVERY 4 WEEKS
     Route: 042
     Dates: start: 20210714
  20. INFLECTRA [Suspect]
     Active Substance: INFLIXIMAB-DYYB
     Dosage: 10 MG/KG ROUND UP TO THE NEAREST HUNDRED EVERY 4 WEEKS
     Route: 042
     Dates: start: 20210909
  21. INFLECTRA [Suspect]
     Active Substance: INFLIXIMAB-DYYB
     Dosage: 10 MG/KG ROUND UP TO THE NEAREST HUNDRED EVERY 4 WEEKS
     Route: 042
     Dates: start: 20211007
  22. INFLECTRA [Suspect]
     Active Substance: INFLIXIMAB-DYYB
     Dosage: 10 MG/KG ROUND UP TO THE NEAREST HUNDRED EVERY 4 WEEKS
     Route: 042
     Dates: start: 20211104
  23. INFLECTRA [Suspect]
     Active Substance: INFLIXIMAB-DYYB
     Dosage: 10 MG/KG ROUND UP TO THE NEAREST HUNDRED EVERY 4 WEEKS
     Route: 042
     Dates: start: 20211202
  24. INFLECTRA [Suspect]
     Active Substance: INFLIXIMAB-DYYB
     Dosage: 10 MG/KG ROUND UP TO THE NEAREST HUNDRED EVERY 4 WEEKS
     Route: 042
     Dates: start: 20211230
  25. INFLECTRA [Suspect]
     Active Substance: INFLIXIMAB-DYYB
     Dosage: 10 MG/KG ROUND UP TO THE NEAREST HUNDRED EVERY 4 WEEKS
     Route: 042
     Dates: start: 20220127
  26. INFLECTRA [Suspect]
     Active Substance: INFLIXIMAB-DYYB
     Dosage: 10 MG/KG ROUND UP TO THE NEAREST HUNDRED EVERY 4 WEEKS
     Route: 042
     Dates: start: 20220224
  27. INFLECTRA [Suspect]
     Active Substance: INFLIXIMAB-DYYB
     Dosage: 10 MG/KG, EVERY 4 WEEKS, 10 MG/KG ROUND UP TO THE NEAREST HUNDRED EVERY 4 WEEKS
     Route: 042
     Dates: start: 20220324
  28. INFLECTRA [Suspect]
     Active Substance: INFLIXIMAB-DYYB
     Dosage: 10 MG/KG, EVERY 4 WEEKS, 10 MG/KG ROUND UP TO THE NEAREST HUNDRED EVERY 4 WEEKS
     Route: 042
     Dates: start: 20220419
  29. INFLECTRA [Suspect]
     Active Substance: INFLIXIMAB-DYYB
     Dosage: 10 MG/KG, EVERY 4 WEEKS, 10 MG/KG ROUND UP TO THE NEAREST HUNDRED EVERY 4 WEEKS
     Route: 042
     Dates: start: 20220517
  30. INFLECTRA [Suspect]
     Active Substance: INFLIXIMAB-DYYB
     Dosage: 10 MG/KG, EVERY 4 WEEKS, 10 MG/KG ROUND UP TO THE NEAREST HUNDRED EVERY 4 WEEKS
     Route: 042
     Dates: start: 20220616
  31. INFLECTRA [Suspect]
     Active Substance: INFLIXIMAB-DYYB
     Dosage: 10 MG/KG, EVERY 4 WEEKS, 10 MG/KG ROUND UP TO THE NEAREST HUNDRED EVERY 4 WEEKS
     Route: 042
     Dates: start: 20220727
  32. INFLECTRA [Suspect]
     Active Substance: INFLIXIMAB-DYYB
     Dosage: 5 MG/KG, EVERY 4 WEEKS, ROUND DOSE UP TO FULL VIAL
     Route: 042
     Dates: start: 20220825
  33. INFLECTRA [Suspect]
     Active Substance: INFLIXIMAB-DYYB
     Dosage: 5 MG/KG, EVERY 4 WEEKS, ROUND DOSE UP TO FULL VIAL
     Route: 042
     Dates: start: 20220919
  34. INFLECTRA [Suspect]
     Active Substance: INFLIXIMAB-DYYB
     Dosage: 5 MG/KG, EVERY 4 WEEKS, ROUND DOSE UP TO FULL VIAL
     Route: 042
     Dates: start: 20221020
  35. INFLECTRA [Suspect]
     Active Substance: INFLIXIMAB-DYYB
     Dosage: 5 MG/KG, EVERY 4 WEEKS, ROUND DOSE UP TO FULL VIAL
     Route: 042
     Dates: start: 20221117
  36. AZATHIOPRINE [Concomitant]
     Active Substance: AZATHIOPRINE
     Dosage: UNK
     Dates: start: 20201206
  37. AZATHIOPRINE [Concomitant]
     Active Substance: AZATHIOPRINE
     Dosage: 1 DF, UNK DOSE
     Dates: start: 20201206
  38. CORTISONE [Concomitant]
     Active Substance: CORTISONE
     Dosage: 40 MG, 1X/DAY (THEN A DECREASING DOSE UNTIL 03JAN2021)
     Dates: start: 20201101
  39. CORTISONE [Concomitant]
     Active Substance: CORTISONE
     Dosage: UNK
  40. CORTISONE [Concomitant]
     Active Substance: CORTISONE
     Dosage: 1 DF, DOSAGE NOT AVAILABLE
     Route: 065
  41. POLYETHYLENE GLYCOL 3350 [Concomitant]
     Active Substance: POLYETHYLENE GLYCOL 3350
     Indication: Constipation
     Dosage: 17 G, AS NEEDED
  42. POLYETHYLENE GLYCOL 3350 [Concomitant]
     Active Substance: POLYETHYLENE GLYCOL 3350
     Dosage: UNK
  43. VITAMINS [Concomitant]
     Active Substance: VITAMINS
     Dosage: UNK
  44. VITAMINS [Concomitant]
     Active Substance: VITAMINS
     Dosage: 1 DF, DOSAGE NOT AVAILABLE
     Route: 065
  45. PANTOPRAZOLE SODIUM [Concomitant]
     Active Substance: PANTOPRAZOLE SODIUM
     Indication: Dyspepsia
     Dosage: 40 UNK, AS NEEDED
  46. TYLENOL [Concomitant]
     Active Substance: ACETAMINOPHEN
     Dosage: UNK, AS NEEDED
  47. TYLENOL [Concomitant]
     Active Substance: ACETAMINOPHEN
     Dosage: 1 DF, DOSAGE NOT AVAILABLE
     Route: 065

REACTIONS (32)
  - Infection [Unknown]
  - Diarrhoea haemorrhagic [Recovered/Resolved]
  - Malaise [Not Recovered/Not Resolved]
  - Colitis [Recovered/Resolved]
  - Pyrexia [Unknown]
  - Drug specific antibody present [Unknown]
  - Off label use [Unknown]
  - Off label use [Unknown]
  - Intentional product use issue [Unknown]
  - Inappropriate schedule of product administration [Unknown]
  - Anal fissure [Unknown]
  - Carpal tunnel syndrome [Unknown]
  - Eye pain [Unknown]
  - Grip strength decreased [Recovered/Resolved]
  - Accident [Unknown]
  - Vomiting [Unknown]
  - Weight fluctuation [Unknown]
  - Weight increased [Unknown]
  - Feeling abnormal [Unknown]
  - Arthralgia [Not Recovered/Not Resolved]
  - Chills [Unknown]
  - Condition aggravated [Recovered/Resolved]
  - Fatigue [Unknown]
  - Hordeolum [Not Recovered/Not Resolved]
  - Nausea [Not Recovered/Not Resolved]
  - Paraesthesia [Recovered/Resolved]
  - Pain [Not Recovered/Not Resolved]
  - Swelling [Not Recovered/Not Resolved]
  - Condition aggravated [Recovered/Resolved]
  - Constipation [Not Recovered/Not Resolved]
  - Condition aggravated [Recovered/Resolved]
  - Abdominal pain [Recovered/Resolved]

NARRATIVE: CASE EVENT DATE: 20191127
